FAERS Safety Report 24861617 (Version 3)
Quarter: 2025Q1

REPORT INFORMATION
  Report Type: Report from Study
  Country: IN (occurrence: IN)
  Receive Date: 20250120
  Receipt Date: 20250313
  Transmission Date: 20250409
  Serious: Yes (Other)
  Sender: ROCHE
  Company Number: IN-ROCHE-3558642

PATIENT
  Age: 60 Year
  Sex: Female

DRUGS (3)
  1. TECENTRIQ [Suspect]
     Active Substance: ATEZOLIZUMAB
     Indication: Lung neoplasm malignant
     Dosage: BATCH / LOT # LIFETIME FREE FOR 1 YEAR
     Route: 042
     Dates: start: 20231208
  2. TECENTRIQ [Suspect]
     Active Substance: ATEZOLIZUMAB
     Dosage: HER 3R AND 20TH CYCLE OF ATEZOLIZUMAB WAS SCHEDULED BY THE PHYSICIAN ON THE 20TH DAY INSTEAD OF THE
     Route: 042
  3. TECENTRIQ [Suspect]
     Active Substance: ATEZOLIZUMAB
     Dosage: HER 18TH CYCLE OF ATEZOLIZUMAB WAS SCHEDULED BY THE PHYSICIAN ON THE 22TH DAY INSTEAD OF THE 21-DAY
     Route: 042

REACTIONS (17)
  - Off label use [Unknown]
  - Cough [Unknown]
  - Lymphadenopathy mediastinal [Unknown]
  - Bone lesion [Unknown]
  - Hypermetabolism [Unknown]
  - Lymphadenopathy mediastinal [Unknown]
  - Metastases to lung [Unknown]
  - Metastases to bone [Unknown]
  - Soft tissue neoplasm [Unknown]
  - Dyspnoea exertional [Unknown]
  - Lymphadenopathy mediastinal [Unknown]
  - Neoplasm malignant [Unknown]
  - Lung neoplasm malignant [Unknown]
  - Dyspnoea at rest [Unknown]
  - Lung disorder [Unknown]
  - Dyspnoea [Unknown]
  - Diabetes mellitus inadequate control [Unknown]

NARRATIVE: CASE EVENT DATE: 20240206
